FAERS Safety Report 6417784-3 (Version None)
Quarter: 2009Q4

REPORT INFORMATION
  Report Type: 
  Country: None (occurrence: None)
  Receive Date: 20091028
  Receipt Date: 20091020
  Transmission Date: 20100525
  Serious: Yes (Hospitalization)
  Sender: FDA-Public Use
  Company Number: JP-AVENTIS-200912895JP

PATIENT

DRUGS (2)
  1. RILUTEK [Suspect]
     Route: 048
     Dates: start: 20090901
  2. ZYLORIC [Concomitant]
     Route: 048

REACTIONS (1)
  - RASH GENERALISED [None]
